FAERS Safety Report 4442128-6 (Version None)
Quarter: 2004Q3

REPORT INFORMATION
  Report Type: 
  Country: None (occurrence: None)
  Receive Date: 20040903
  Receipt Date: 20040721
  Transmission Date: 20050211
  Serious: Yes (Other)
  Sender: FDA-Public Use
  Company Number: 2004UW15335

PATIENT
  Age: 57 Year
  Sex: Male
  Weight: 86.1834 kg

DRUGS (3)
  1. CRESTOR [Suspect]
     Indication: HYPERCHOLESTEROLAEMIA
     Dosage: 10 MG PO
     Route: 048
     Dates: start: 20040423, end: 20040720
  2. XANAX [Concomitant]
  3. ZOLOFT [Concomitant]

REACTIONS (3)
  - ANXIETY [None]
  - EMOTIONAL DISORDER [None]
  - INSOMNIA [None]
